FAERS Safety Report 15398105 (Version 8)
Quarter: 2022Q2

REPORT INFORMATION
  Report Type: Report from Study
  Country: GB (occurrence: GB)
  Receive Date: 20180918
  Receipt Date: 20220506
  Transmission Date: 20220720
  Serious: Yes (Hospitalization)
  Sender: FDA-Public Use
  Company Number: GB-ROCHE-2150127

PATIENT
  Age: 52 Year
  Sex: Female

DRUGS (16)
  1. DOCETAXEL [Suspect]
     Active Substance: DOCETAXEL
     Indication: Breast cancer metastatic
     Dosage: 120 MG, Q3W
     Route: 042
     Dates: start: 20180215
  2. DOCETAXEL [Suspect]
     Active Substance: DOCETAXEL
     Dosage: 120 MG, TIW
     Route: 042
     Dates: start: 20180216, end: 20180601
  3. TRASTUZUMAB [Suspect]
     Active Substance: TRASTUZUMAB
     Indication: Breast cancer metastatic
     Dosage: 600 MG, EVERY 3 WEEKS
     Route: 058
     Dates: start: 20180216, end: 20210409
  4. TRASTUZUMAB [Suspect]
     Active Substance: TRASTUZUMAB
     Dosage: UNK
     Route: 065
  5. PERTUZUMAB [Suspect]
     Active Substance: PERTUZUMAB
     Indication: Breast cancer metastatic
     Dosage: 840 MG/KG, EVERY 3 WEEKS
     Route: 042
     Dates: start: 20180216, end: 20210409
  6. PERTUZUMAB [Suspect]
     Active Substance: PERTUZUMAB
     Dosage: 1200 MG, EVERY 3 WEEKS
     Route: 058
     Dates: start: 20210430
  7. DEXAMETHASONE [Concomitant]
     Active Substance: DEXAMETHASONE
     Indication: Prophylaxis
     Dosage: 8 MG, EVERY 3 WEEKS
     Route: 048
     Dates: start: 20180218
  8. FILGRASTIM [Concomitant]
     Active Substance: FILGRASTIM
     Indication: Prophylaxis
     Dosage: 300 UG
     Route: 058
     Dates: start: 20180219
  9. ASPIRIN\CAFFEINE [Concomitant]
     Active Substance: ASPIRIN\CAFFEINE
     Dosage: 1000 MG, AS NEEDED
     Route: 048
  10. RAMIPRIL [Concomitant]
     Active Substance: RAMIPRIL
     Indication: Ejection fraction decreased
     Dosage: 2.5 MG, QD
     Route: 048
     Dates: start: 20181113
  11. ACETAMINOPHEN [Concomitant]
     Active Substance: ACETAMINOPHEN
  12. AMOXICILLIN [Concomitant]
     Active Substance: AMOXICILLIN
  13. ZOPICLONE [Concomitant]
     Active Substance: ZOPICLONE
  14. CIPROFLOXACIN [Concomitant]
     Active Substance: CIPROFLOXACIN
  15. LOPERAMIDE [Concomitant]
     Active Substance: LOPERAMIDE
  16. METRONIDAZOLE [Concomitant]
     Active Substance: METRONIDAZOLE

REACTIONS (5)
  - Diarrhoea [Unknown]
  - Pain in extremity [Recovered/Resolved]
  - Fatigue [Not Recovered/Not Resolved]
  - Post procedural infection [Unknown]
  - Insomnia [Unknown]

NARRATIVE: CASE EVENT DATE: 20180327
